FAERS Safety Report 11826348 (Version 4)
Quarter: 2016Q1

REPORT INFORMATION
  Report Type: Spontaneous
  Country: US (occurrence: US)
  Receive Date: 20151211
  Receipt Date: 20160314
  Transmission Date: 20160525
  Serious: No
  Sender: FDA-Public Use
  Company Number: US-PFIZER INC-2015435627

PATIENT
  Age: 32 Year
  Sex: Male
  Weight: 79 kg

DRUGS (5)
  1. FLAGYL [Suspect]
     Active Substance: METRONIDAZOLE\METRONIDAZOLE HYDROCHLORIDE
     Indication: LYME DISEASE
     Dosage: 500 MG, 2X/DAY
     Route: 048
     Dates: start: 201302, end: 20130215
  2. METRONIDAZOLE. [Suspect]
     Active Substance: METRONIDAZOLE
     Indication: LYME DISEASE
     Dosage: 500 MG, 2X/DAY, 2DAYS/ WEEK
     Route: 048
     Dates: start: 201402, end: 20140611
  3. METRONIDAZOLE. [Suspect]
     Active Substance: METRONIDAZOLE
     Dosage: UNK (3DAYS/WEEK)
  4. METRONIDAZOLE. [Suspect]
     Active Substance: METRONIDAZOLE
     Dosage: 500 MG 3D/WEEK
     Route: 048
     Dates: start: 2015, end: 2015
  5. METRONIDAZOLE. [Suspect]
     Active Substance: METRONIDAZOLE
     Dosage: BID 500 MG 2D/WK
     Route: 048
     Dates: start: 201502, end: 2015

REACTIONS (3)
  - Pain in extremity [Unknown]
  - Burning sensation [Unknown]
  - Neuralgia [Not Recovered/Not Resolved]

NARRATIVE: CASE EVENT DATE: 2013
